FAERS Safety Report 5374475-8 (Version None)
Quarter: 2007Q2

REPORT INFORMATION
  Report Type: 
  Country: None (occurrence: None)
  Receive Date: 20070629
  Receipt Date: 20070620
  Transmission Date: 20071010
  Serious: Yes (Life-Threatening, Hospitalization, Other)
  Sender: FDA-Public Use
  Company Number: US-NOVOPROD-264775

PATIENT
  Age: 46 Year
  Sex: Female

DRUGS (5)
  1. NOVOLOG MIX 70/30 [Suspect]
     Indication: INSULIN-REQUIRING TYPE II DIABETES MELLITUS
     Dosage: 75 IU, BID
     Route: 058
     Dates: start: 20070524, end: 20070601
  2. METFORMIN HCL [Concomitant]
  3. LIPITOR [Concomitant]
     Indication: ILL-DEFINED DISORDER
  4. PRINZIDE                           /00977901/ [Concomitant]
     Indication: ILL-DEFINED DISORDER
  5. IBUPROFEN [Concomitant]
     Indication: ILL-DEFINED DISORDER

REACTIONS (3)
  - DIZZINESS [None]
  - LOSS OF CONSCIOUSNESS [None]
  - SWOLLEN TONGUE [None]
